FAERS Safety Report 4416292-9 (Version None)
Quarter: 2004Q3

REPORT INFORMATION
  Report Type: 
  Country: None (occurrence: None)
  Receive Date: 20040803
  Receipt Date: 20040721
  Transmission Date: 20050211
  Serious: Yes (Hospitalization, Other)
  Sender: FDA-Public Use
  Company Number: USA-2003-0009607

PATIENT
  Age: 47 Year
  Sex: Male
  Weight: 88.9 kg

DRUGS (16)
  1. OXYCONTIN [Suspect]
     Indication: PAIN
     Dosage: SEE IMAGE
  2. KEFLEX [Concomitant]
  3. VALIUM [Concomitant]
  4. MOTRIN [Concomitant]
  5. NEXIUM [Concomitant]
  6. AMBIEN [Concomitant]
  7. LEXAPRO [Concomitant]
  8. PAXIL [Concomitant]
  9. PROTONIX [Concomitant]
  10. XANAX [Concomitant]
  11. REBETRON (INTERFERON ALFA-2B, RIBAVIRIN) [Concomitant]
  12. GINKGO BILOBA (GINKGO BILOBA) [Concomitant]
  13. MILK THISTLE [Concomitant]
  14. PRILOSEC [Concomitant]
  15. MULTIVITAMINS (THIAMINE HYDROCHLORIDE, RIBOFLAVIN, RETINOL, PANTHETOL, [Concomitant]
  16. BENADRYL [Concomitant]

REACTIONS (29)
  - ABNORMAL BEHAVIOUR [None]
  - ANOREXIA [None]
  - ANXIETY [None]
  - ARTHRALGIA [None]
  - ASTHENIA [None]
  - BACK PAIN [None]
  - DEPRESSION [None]
  - DIARRHOEA [None]
  - DRUG ABUSER [None]
  - DRUG DEPENDENCE [None]
  - DRUG WITHDRAWAL SYNDROME [None]
  - EPICONDYLITIS [None]
  - FATIGUE [None]
  - HYPERHIDROSIS [None]
  - HYPOAESTHESIA [None]
  - INSOMNIA [None]
  - JOINT DISLOCATION POSTOPERATIVE [None]
  - JOINT EFFUSION [None]
  - JOINT STIFFNESS [None]
  - MALAISE [None]
  - MENISCUS LESION [None]
  - MUSCULOSKELETAL DISCOMFORT [None]
  - NAUSEA [None]
  - NERVOUSNESS [None]
  - PAIN [None]
  - PAIN IN EXTREMITY [None]
  - SPINAL OSTEOARTHRITIS [None]
  - SYNCOPE [None]
  - VOMITING [None]
